FAERS Safety Report 13959294 (Version 3)
Quarter: 2018Q3

REPORT INFORMATION
  Report Type: Spontaneous
  Country: US (occurrence: US)
  Receive Date: 20170911
  Receipt Date: 20180704
  Transmission Date: 20181010
  Serious: Yes (Hospitalization, Other)
  Sender: FDA-Public Use
  Company Number: US-DSJP-DSU-2017-135729

PATIENT

DRUGS (3)
  1. BENICAR [Suspect]
     Active Substance: OLMESARTAN MEDOXOMIL
     Dosage: 40 MG, QD
     Route: 048
     Dates: start: 20160808, end: 20170810
  2. BENICAR [Suspect]
     Active Substance: OLMESARTAN MEDOXOMIL
     Indication: HYPERTENSION
     Dosage: 20 MG, QD
     Route: 048
     Dates: end: 20160808
  3. BENICAR HCT [Suspect]
     Active Substance: HYDROCHLOROTHIAZIDE\OLMESARTAN MEDOXOMIL
     Indication: HYPERTENSION
     Dosage: 40/12.5MG, QD
     Route: 048
     Dates: start: 20110808

REACTIONS (8)
  - Small intestinal obstruction [Unknown]
  - Sprue-like enteropathy [Recovered/Resolved]
  - Ileal ulcer [Unknown]
  - Inguinal hernia [Unknown]
  - Large intestine polyp [Recovered/Resolved]
  - Diverticulum [Unknown]
  - Gastrooesophageal reflux disease [Unknown]
  - Acquired oesophageal web [Unknown]

NARRATIVE: CASE EVENT DATE: 20110808
